FAERS Safety Report 9894583 (Version 2)
Quarter: 2014Q1

REPORT INFORMATION
  Report Type: Spontaneous
  Country: JP (occurrence: JP)
  Receive Date: 20140213
  Receipt Date: 20140307
  Transmission Date: 20141002
  Serious: Yes (Death, Hospitalization, Other)
  Sender: FDA-Public Use
  Company Number: PHHY2014JP017254

PATIENT
  Age: 55 Year
  Sex: Female

DRUGS (3)
  1. 5-FLUOROURACIL [Suspect]
     Indication: BREAST CANCER STAGE IV
     Dosage: 1000 MG, UNK
     Dates: start: 20040423, end: 20040514
  2. EPIRUBICIN [Suspect]
     Indication: BREAST CANCER STAGE IV
     Dosage: 170 MG, UNK
     Dates: start: 20040423, end: 20040514
  3. CYCLOPHOSPHAMIDE [Suspect]
     Indication: BREAST CANCER STAGE IV
     Dosage: 1000 MG, UNK
     Dates: start: 20040423, end: 20040514

REACTIONS (9)
  - Multi-organ failure [Fatal]
  - Tumour lysis syndrome [Unknown]
  - Melaena [Unknown]
  - Disseminated intravascular coagulation [Unknown]
  - Fatigue [Unknown]
  - Pyrexia [Unknown]
  - Sepsis [Unknown]
  - Hepatic function abnormal [Unknown]
  - Renal impairment [Unknown]
